FAERS Safety Report 5793329-6 (Version None)
Quarter: 2008Q2

REPORT INFORMATION
  Report Type: 
  Country: None (occurrence: None)
  Receive Date: 20080627
  Receipt Date: 20080623
  Transmission Date: 20081010
  Serious: Yes (Hospitalization)
  Sender: FDA-Public Use
  Company Number: A0734339A

PATIENT
  Age: 49 Year
  Sex: Male

DRUGS (12)
  1. AVANDIA [Suspect]
     Dosage: 8MG PER DAY
     Route: 048
     Dates: start: 20070101
  2. PLAVIX [Concomitant]
  3. FOSINOPRIL SODIUM [Concomitant]
  4. GLIPIZIDE [Concomitant]
  5. TRICOR [Concomitant]
  6. POTASSIUM CHLORIDE [Concomitant]
  7. CARVEDILOL [Concomitant]
  8. ASPIRIN [Concomitant]
  9. FUROSEMIDE [Concomitant]
  10. METFORMIN HCL [Concomitant]
  11. WARFARIN SODIUM [Concomitant]
  12. PRILOSEC [Concomitant]

REACTIONS (5)
  - BLISTER [None]
  - FATIGUE [None]
  - MYOCARDIAL INFARCTION [None]
  - OEDEMA PERIPHERAL [None]
  - WEIGHT INCREASED [None]
